FAERS Safety Report 18665678 (Version 1)
Quarter: 2020Q4

REPORT INFORMATION
  Report Type: Spontaneous
  Country: CN (occurrence: CN)
  Receive Date: 20201226
  Receipt Date: 20201226
  Transmission Date: 20210114
  Serious: Yes (Other)
  Sender: FDA-Public Use
  Company Number: CN-009507513-2012CHN010228

PATIENT
  Age: 60 Year
  Sex: Female
  Weight: 66 kg

DRUGS (1)
  1. JANUMET [Suspect]
     Active Substance: METFORMIN HYDROCHLORIDE\SITAGLIPTIN PHOSPHATE
     Indication: DIABETES MELLITUS
     Dosage: 50MG/850MG 1 TABLET ORALLY TWICE A DAY
     Route: 048
     Dates: start: 20201210, end: 20201213

REACTIONS (6)
  - Decreased appetite [Unknown]
  - Nausea [Recovering/Resolving]
  - Vomiting [Recovering/Resolving]
  - Asthenia [Recovering/Resolving]
  - Diabetes mellitus [Unknown]
  - Discomfort [Unknown]

NARRATIVE: CASE EVENT DATE: 202012
